FAERS Safety Report 23177467 (Version 1)
Quarter: 2023Q4

REPORT INFORMATION
  Report Type: Report from Study
  Country: GB (occurrence: GB)
  Receive Date: 20231113
  Receipt Date: 20231113
  Transmission Date: 20240109
  Serious: Yes (Other)
  Sender: FDA-Public Use
  Company Number: GB-SANDOZ-SDZ2023GB047933

PATIENT
  Sex: Male

DRUGS (1)
  1. HYRIMOZ [Suspect]
     Active Substance: ADALIMUMAB-ADAZ
     Indication: Rheumatoid arthritis
     Dosage: 40 MG EOW
     Route: 058
     Dates: start: 20231026

REACTIONS (5)
  - Lower respiratory tract infection [Unknown]
  - Pallor [Unknown]
  - Illness [Unknown]
  - Oropharyngeal pain [Unknown]
  - Nasopharyngitis [Unknown]
